FAERS Safety Report 12934877 (Version 3)
Quarter: 2016Q4

REPORT INFORMATION
  Report Type: Report from Study
  Country: US (occurrence: US)
  Receive Date: 20161112
  Receipt Date: 20161213
  Transmission Date: 20170207
  Serious: No
  Sender: FDA-Public Use
  Company Number: PHEH2016US029648

PATIENT
  Sex: Male

DRUGS (2)
  1. SIGNIFOR [Suspect]
     Active Substance: PASIREOTIDE
     Indication: BILE DUCT CANCER
     Dosage: 0.9 MG, BID
     Route: 058
     Dates: start: 20161107, end: 20161113
  2. SIGNIFOR [Suspect]
     Active Substance: PASIREOTIDE
     Indication: PANCREATIC LEAK

REACTIONS (1)
  - No adverse event [Unknown]
